FAERS Safety Report 4945361-X (Version None)
Quarter: 2006Q1

REPORT INFORMATION
  Report Type: 
  Country: None (occurrence: None)
  Receive Date: 20060315
  Receipt Date: 20060315
  Transmission Date: 20060701
  Serious: Yes (Other)
  Sender: FDA-Public Use
  Company Number: None

PATIENT
  Age: 68 Year
  Sex: Male

DRUGS (8)
  1. GLIMEPIRIDE [Suspect]
     Indication: DIABETES MELLITUS
     Dosage: 2 MG ORAL TABLETS, ONCE DAILY
     Route: 048
  2. GLIMEPIRIDE [Suspect]
     Indication: HYPERGLYCAEMIA
     Dosage: 2 MG ORAL TABLETS, ONCE DAILY
     Route: 048
  3. LOTREL [Concomitant]
  4. METFORMIN HYDROCHLORIDE [Concomitant]
  5. CLONIDINE HCL [Concomitant]
  6. AVANDIA [Concomitant]
  7. LIPITOR [Concomitant]
  8. ZYRTEC [Concomitant]

REACTIONS (3)
  - BLOOD GLUCOSE INCREASED [None]
  - CONDITION AGGRAVATED [None]
  - PHARMACEUTICAL PRODUCT COMPLAINT [None]
